FAERS Safety Report 18430823 (Version 1)
Quarter: 2020Q4

REPORT INFORMATION
  Report Type: Spontaneous
  Country: US (occurrence: US)
  Receive Date: 20201027
  Receipt Date: 20201027
  Transmission Date: 20210114
  Serious: No
  Sender: FDA-Public Use
  Company Number: None

PATIENT
  Age: 69 Year
  Sex: Female

DRUGS (1)
  1. AMBRISENTAN TAB 10MG [Suspect]
     Active Substance: AMBRISENTAN
     Route: 048
     Dates: start: 201804

REACTIONS (4)
  - Eye swelling [None]
  - Hypertension [None]
  - Fungal infection [None]
  - Headache [None]

NARRATIVE: CASE EVENT DATE: 20201001
